FAERS Safety Report 8295287 (Version 2)
Quarter: 2013Q1

REPORT INFORMATION
  Report Type: Spontaneous
  Country: FR (occurrence: FR)
  Receive Date: 20111216
  Receipt Date: 20130313
  Transmission Date: 20140127
  Serious: Yes (Death, Hospitalization)
  Sender: FDA-Public Use
  Company Number: FR-GLAXOSMITHKLINE-B0767825A

PATIENT
  Age: 65 Year
  Sex: Male

DRUGS (2)
  1. LAMICTAL [Suspect]
     Indication: EPILEPSY
     Route: 048
     Dates: start: 20111012, end: 20111105
  2. DEPAKINE [Suspect]
     Indication: EPILEPSY
     Route: 048
     Dates: end: 20111105

REACTIONS (19)
  - Stevens-Johnson syndrome [Fatal]
  - Toxic epidermal necrolysis [Fatal]
  - Disseminated intravascular coagulation [Not Recovered/Not Resolved]
  - Cholestasis [Not Recovered/Not Resolved]
  - Skin disorder [Not Recovered/Not Resolved]
  - Hypovolaemia [Not Recovered/Not Resolved]
  - Vasoplegia syndrome [Not Recovered/Not Resolved]
  - Renal failure [Not Recovered/Not Resolved]
  - Shock [Fatal]
  - General physical health deterioration [Fatal]
  - Odynophagia [Not Recovered/Not Resolved]
  - Rash [Not Recovered/Not Resolved]
  - Hyperthermia [Not Recovered/Not Resolved]
  - Macule [Not Recovered/Not Resolved]
  - Conjunctivitis [Not Recovered/Not Resolved]
  - Oral disorder [Not Recovered/Not Resolved]
  - Erythema [Not Recovered/Not Resolved]
  - Blister [Not Recovered/Not Resolved]
  - Necrosis [Not Recovered/Not Resolved]
